FAERS Safety Report 10217625 (Version 5)
Quarter: 2014Q4

REPORT INFORMATION
  Report Type: Report from Study
  Country: US (occurrence: US)
  Receive Date: 20140604
  Receipt Date: 20141128
  Transmission Date: 20150528
  Serious: Yes (Hospitalization, Other)
  Sender: FDA-Public Use
  Company Number: PHEH2014US010748

PATIENT
  Age: 61 Year
  Sex: Female
  Weight: 69.84 kg

DRUGS (3)
  1. GABAPENTIN. [Concomitant]
     Active Substance: GABAPENTIN
     Indication: PRODUCT USED FOR UNKNOWN INDICATION
     Route: 065
  2. GILENYA [Suspect]
     Active Substance: FINGOLIMOD HYDROCHLORIDE
     Indication: MULTIPLE SCLEROSIS
     Dosage: 0.5 MG, QD
     Route: 048
     Dates: start: 20140508, end: 201409
  3. LOSARTAN [Concomitant]
     Active Substance: LOSARTAN
     Indication: PRODUCT USED FOR UNKNOWN INDICATION
     Route: 065

REACTIONS (15)
  - Photophobia [Unknown]
  - Central nervous system lesion [Unknown]
  - Mobility decreased [Not Recovered/Not Resolved]
  - Muscular weakness [Not Recovered/Not Resolved]
  - Urinary tract infection [Unknown]
  - Asthenia [Unknown]
  - Neuromyelitis optica [Unknown]
  - Fatigue [Unknown]
  - Drug ineffective [Unknown]
  - Gait disturbance [Not Recovered/Not Resolved]
  - Dysarthria [Not Recovered/Not Resolved]
  - Incoherent [Not Recovered/Not Resolved]
  - Muscle spasms [Unknown]
  - Vision blurred [Unknown]
  - Optic neuritis [Recovering/Resolving]

NARRATIVE: CASE EVENT DATE: 20140525
